FAERS Safety Report 6372617-9 (Version None)
Quarter: 2009Q3

REPORT INFORMATION
  Report Type: 
  Country: None (occurrence: None)
  Receive Date: 20090922
  Receipt Date: 20090922
  Transmission Date: 20100115
  Serious: Yes (Other)
  Sender: FDA-Public Use
  Company Number: None

PATIENT
  Sex: Female

DRUGS (1)
  1. TOPAMAX [Suspect]
     Indication: MIGRAINE PROPHYLAXIS
     Dosage: 60 MG PO BID

REACTIONS (4)
  - BLEPHAROSPASM [None]
  - COGNITIVE DISORDER [None]
  - PRODUCT SUBSTITUTION ISSUE [None]
  - VISION BLURRED [None]
